FAERS Safety Report 20058761 (Version 2)
Quarter: 2021Q4

REPORT INFORMATION
  Report Type: Spontaneous
  Country: US (occurrence: US)
  Receive Date: 20211111
  Receipt Date: 20211229
  Transmission Date: 20220303
  Serious: Yes (Other)
  Sender: FDA-Public Use
  Company Number: US-PFIZER INC-202101467203

PATIENT
  Age: 65 Year
  Sex: Female
  Weight: 49.9 kg

DRUGS (1)
  1. ESTRING [Suspect]
     Active Substance: ESTRADIOL
     Dosage: UNK

REACTIONS (10)
  - Vaginal haemorrhage [Recovered/Resolved]
  - Device issue [Recovered/Resolved]
  - Accidental overdose [Recovered/Resolved]
  - Intentional product use issue [Unknown]
  - Discomfort [Recovering/Resolving]
  - Gastrointestinal disorder [Recovering/Resolving]
  - Renal disorder [Unknown]
  - Spinal disorder [Unknown]
  - Malaise [Unknown]
  - Back disorder [Unknown]
